FAERS Safety Report 9626766 (Version 2)
Quarter: 2013Q4

REPORT INFORMATION
  Report Type: Spontaneous
  Country: US (occurrence: US)
  Receive Date: 20131016
  Receipt Date: 20131104
  Transmission Date: 20140711
  Serious: Yes (Hospitalization)
  Sender: FDA-Public Use
  Company Number: US-GLAXOSMITHKLINE-A1045483A

PATIENT
  Sex: Female

DRUGS (2)
  1. ADVAIR DISKUS [Suspect]
     Indication: DYSPNOEA
     Route: 065
     Dates: start: 20090101
  2. VENTOLIN [Concomitant]

REACTIONS (1)
  - Hospitalisation [Unknown]
